FAERS Safety Report 6919556-X (Version None)
Quarter: 2010Q3

REPORT INFORMATION
  Report Type: 
  Country: None (occurrence: None)
  Receive Date: 20100811
  Receipt Date: 20100730
  Transmission Date: 20110219
  Serious: Yes (Other)
  Sender: FDA-Public Use
  Company Number: JP-PFIZER INC-2010095636

PATIENT
  Age: 87 Year
  Sex: Female

DRUGS (10)
  1. LYRICA [Suspect]
     Indication: POST HERPETIC NEURALGIA
     Dosage: 150 MG, DAILY
     Route: 048
     Dates: start: 20100713
  2. TAKEPRON [Concomitant]
     Dosage: 15 MG DAILY
     Route: 048
  3. NORVASC [Concomitant]
     Dosage: 5 MG, DAILY
     Route: 048
  4. LASIX [Concomitant]
     Dosage: 20 MG, DAILY
     Route: 048
  5. PERSANTINE [Concomitant]
     Dosage: 37.5 MG, DAILY
     Route: 048
  6. SELBEX [Concomitant]
     Dosage: 150 MG, DAILY
     Route: 048
  7. ALENDRONATE SODIUM [Concomitant]
     Dosage: 35 MG, DAILY
     Route: 048
  8. MIGLITOL [Concomitant]
     Dosage: 150 MG, DAILY
     Route: 048
  9. LOXONIN [Concomitant]
     Dosage: 180 MG, DAILY
     Route: 048
  10. KETOPROFEN [Concomitant]
     Dosage: 20 MG, DAILY
     Route: 062

REACTIONS (3)
  - HEAT EXHAUSTION [None]
  - HEAT ILLNESS [None]
  - HYPERKALAEMIA [None]
